FAERS Safety Report 6497351-6 (Version None)
Quarter: 2009Q4

REPORT INFORMATION
  Report Type: 
  Country: None (occurrence: None)
  Receive Date: 20091215
  Receipt Date: 20091007
  Transmission Date: 20100525
  Serious: No
  Sender: FDA-Public Use
  Company Number: A0810756A

PATIENT
  Age: 64 Year
  Sex: Male

DRUGS (7)
  1. AVODART [Suspect]
     Indication: BENIGN PROSTATIC HYPERPLASIA
     Dosage: .5MG PER DAY
     Route: 048
     Dates: start: 20070101
  2. FLOMAX [Suspect]
     Dosage: .4MG PER DAY
     Route: 048
     Dates: start: 20070101
  3. ATENOLOL [Concomitant]
  4. LOTREL [Concomitant]
  5. GLYBURIDE AND METFORMIN HYDROCHLORIDE [Concomitant]
  6. ASPIRIN [Concomitant]
  7. CENTRUM SILVER [Concomitant]

REACTIONS (3)
  - DRUG INEFFECTIVE [None]
  - MICTURITION URGENCY [None]
  - MIDDLE INSOMNIA [None]
